FAERS Safety Report 19821126 (Version 1)
Quarter: 2021Q3

REPORT INFORMATION
  Report Type: Spontaneous
  Country: US (occurrence: US)
  Receive Date: 20210913
  Receipt Date: 20210913
  Transmission Date: 20211014
  Serious: No
  Sender: FDA-Public Use
  Company Number: US-PFIZER INC-2021265709

PATIENT
  Age: 66 Year
  Sex: Female
  Weight: 92.53 kg

DRUGS (1)
  1. LEVOTHYROXINE SODIUM. [Suspect]
     Active Substance: LEVOTHYROXINE SODIUM
     Indication: THYROID DISORDER
     Dosage: 50 MG, EVERY DAY

REACTIONS (2)
  - Product prescribing error [Unknown]
  - Body height decreased [Unknown]
